FAERS Safety Report 20368385 (Version 2)
Quarter: 2022Q1

REPORT INFORMATION
  Report Type: Report from Study
  Country: US (occurrence: US)
  Receive Date: 20220124
  Receipt Date: 20220302
  Transmission Date: 20220423
  Serious: Yes (Hospitalization, Disabling, Other)
  Sender: FDA-Public Use
  Company Number: US-UCBSA-2022002003

PATIENT
  Age: 65 Year
  Sex: Male

DRUGS (2)
  1. LACOSAMIDE [Suspect]
     Active Substance: LACOSAMIDE
     Indication: Seizure
     Dosage: 100 MILLIGRAM, 2X/DAY (BID)
  2. NAYZILAM [Suspect]
     Active Substance: MIDAZOLAM
     Indication: Product used for unknown indication
     Dosage: UNK

REACTIONS (3)
  - Generalised tonic-clonic seizure [Not Recovered/Not Resolved]
  - Speech disorder [Not Recovered/Not Resolved]
  - Walking disability [Not Recovered/Not Resolved]

NARRATIVE: CASE EVENT DATE: 20220113
